FAERS Safety Report 13523429 (Version 2)
Quarter: 2017Q3

REPORT INFORMATION
  Report Type: Spontaneous
  Country: US (occurrence: US)
  Receive Date: 20170508
  Receipt Date: 20170810
  Transmission Date: 20171127
  Serious: No
  Sender: FDA-Public Use
  Company Number: US-VIFOR (INTERNATIONAL) INC.-VIT-2017-03912

PATIENT
  Age: 83 Year
  Sex: Male

DRUGS (15)
  1. ACETYLSALICYLIC ACID [Concomitant]
     Active Substance: ASPIRIN
  2. VELTASSA [Suspect]
     Active Substance: PATIROMER
     Indication: HYPERKALAEMIA
     Route: 048
     Dates: start: 201703
  3. COLCRYS [Concomitant]
     Active Substance: COLCHICINE
  4. ASCORBIC ACID. [Concomitant]
     Active Substance: ASCORBIC ACID
  5. PREDNISONE. [Concomitant]
     Active Substance: PREDNISONE
  6. SENNOSIDE A+B [Concomitant]
     Active Substance: SENNOSIDES A AND B
  7. NOVOLOG [Concomitant]
     Active Substance: INSULIN ASPART
  8. FOSINOPRIL [Concomitant]
     Active Substance: FOSINOPRIL
  9. NIROSTAT [Concomitant]
  10. OMEPRAZOLE. [Concomitant]
     Active Substance: OMEPRAZOLE
  11. PRAVASTATIN. [Concomitant]
     Active Substance: PRAVASTATIN
  12. CALCITRIOL. [Concomitant]
     Active Substance: CALCITRIOL
  13. CALCIUM [Concomitant]
     Active Substance: CALCIUM
  14. DOCUSATE [Concomitant]
     Active Substance: DOCUSATE
  15. LASIX [Concomitant]
     Active Substance: FUROSEMIDE

REACTIONS (1)
  - Drug ineffective [Not Recovered/Not Resolved]

NARRATIVE: CASE EVENT DATE: 201704
